FAERS Safety Report 5413200-9 (Version None)
Quarter: 2007Q3

REPORT INFORMATION
  Report Type: 
  Country: None (occurrence: None)
  Receive Date: 20070814
  Receipt Date: 20070810
  Transmission Date: 20080115
  Serious: Yes (Death)
  Sender: FDA-Public Use
  Company Number: PHBS2007JP13225

PATIENT

DRUGS (1)
  1. TEGRETOL [Suspect]
     Dosage: 200 MG, TID
     Route: 048

REACTIONS (1)
  - COMPLETED SUICIDE [None]
